FAERS Safety Report 4859496-3 (Version None)
Quarter: 2005Q4

REPORT INFORMATION
  Report Type: 
  Country: None (occurrence: None)
  Receive Date: 20051219
  Receipt Date: 20050617
  Transmission Date: 20060501
  Serious: No
  Sender: FDA-Public Use
  Company Number: US-GLAXOSMITHKLINE-A0563123A

PATIENT
  Age: 58 Year
  Sex: Female

DRUGS (5)
  1. NICODERM CQ [Suspect]
  2. CYMBALTA [Concomitant]
  3. LAMICTAL [Concomitant]
  4. KLONOPIN [Concomitant]
  5. SEROQUEL [Concomitant]

REACTIONS (2)
  - MEMORY IMPAIRMENT [None]
  - TREMOR [None]
